FAERS Safety Report 11192088 (Version 2)
Quarter: 2018Q3

REPORT INFORMATION
  Report Type: Spontaneous
  Country: SE (occurrence: SE)
  Receive Date: 20150616
  Receipt Date: 20180702
  Transmission Date: 20181010
  Serious: Yes (Other)
  Sender: FDA-Public Use
  Company Number: SE-PFIZER INC-2015195697

PATIENT
  Age: 40 Year
  Sex: Female

DRUGS (2)
  1. SEROQUEL [Concomitant]
     Active Substance: QUETIAPINE FUMARATE
     Dosage: UNK
  2. DALACIN [Suspect]
     Active Substance: CLINDAMYCIN
     Indication: GROIN ABSCESS
     Dosage: 900 MG, DAILY
     Route: 048
     Dates: start: 20140910, end: 20140915

REACTIONS (2)
  - Angioedema [Recovered/Resolved]
  - Dyspnoea [Recovered/Resolved]

NARRATIVE: CASE EVENT DATE: 20140915
